FAERS Safety Report 11066557 (Version 1)
Quarter: 2015Q2

REPORT INFORMATION
  Report Type: Spontaneous
  Country: US (occurrence: None)
  Receive Date: 20150416
  Receipt Date: 20150416
  Transmission Date: 20150821
  Serious: Yes (Hospitalization, Other)
  Sender: FDA-Public Use
  Company Number: 2012P1060067

PATIENT
  Age: 72 Year
  Sex: Female
  Weight: 72.58 kg

DRUGS (3)
  1. CHLORPROMAZINE 25MG [Suspect]
     Active Substance: CHLORPROMAZINE
     Indication: HYPERTENSIVE CRISIS
     Route: 048
     Dates: start: 1994
  2. THORAZINE [Suspect]
     Active Substance: CHLORPROMAZINE
     Dates: start: 1998
  3. PARNATE [Suspect]
     Active Substance: TRANYLCYPROMINE SULFATE
     Indication: DEPRESSION
     Route: 048
     Dates: start: 1991

REACTIONS (9)
  - Eye pain [None]
  - Tinnitus [None]
  - Muscle tightness [None]
  - Hypertensive crisis [None]
  - Formication [None]
  - Photopsia [None]
  - Fatigue [None]
  - Labelled drug-food interaction medication error [None]
  - Hypotension [None]

NARRATIVE: CASE EVENT DATE: 1994
